FAERS Safety Report 8832508 (Version 2)
Quarter: 2012Q4

REPORT INFORMATION
  Report Type: Report from Study
  Country: IT (occurrence: IT)
  Receive Date: 20121010
  Receipt Date: 20121112
  Transmission Date: 20130627
  Serious: Yes (Hospitalization)
  Sender: FDA-Public Use
  Company Number: IT-009507513-1206USA01902

PATIENT
  Age: 5 Year
  Sex: Male
  Weight: 18 kg

DRUGS (14)
  1. APREPITANT [Suspect]
     Indication: PROPHYLAXIS OF NAUSEA AND VOMITING
     Dosage: 2 ml, qd
     Route: 048
     Dates: start: 20120329, end: 20120329
  2. APREPITANT [Suspect]
     Dosage: 1 ml, qd
     Route: 048
     Dates: start: 20120330, end: 20120331
  3. APREPITANT [Suspect]
     Dosage: 2 ml, qd
     Route: 048
     Dates: start: 20120423, end: 20120423
  4. APREPITANT [Suspect]
     Dosage: 1 ml, qd
     Route: 048
     Dates: start: 20120424, end: 20120425
  5. APREPITANT [Suspect]
     Dosage: 2 ml, qd
     Route: 048
     Dates: start: 20120604, end: 20120604
  6. APREPITANT [Suspect]
     Dosage: 1.3 ml, qd
     Route: 048
     Dates: start: 20120605, end: 20120606
  7. ONDANSETRON [Suspect]
     Indication: PROPHYLAXIS OF NAUSEA AND VOMITING
     Dosage: 3 mg, qd
     Dates: start: 20120123, end: 20120124
  8. ONDANSETRON [Suspect]
     Dosage: 3 mg, qd
     Dates: start: 20120329, end: 20120330
  9. ONDANSETRON [Suspect]
     Dosage: 3 mg, bid
     Dates: start: 20120423, end: 20120424
  10. ONDANSETRON [Suspect]
     Dosage: 3 mg, bid
     Dates: start: 20120604, end: 20120605
  11. DEXAMETHASONE [Suspect]
     Indication: PROPHYLAXIS OF NAUSEA AND VOMITING
     Dosage: 50 ml, UNK
     Route: 042
     Dates: start: 20120123, end: 20120123
  12. IFOSFAMIDE [Suspect]
     Indication: CHEMOTHERAPY
     Dosage: 2200 mg, qd
     Route: 042
     Dates: start: 20120605, end: 20120605
  13. VINCRISTINE SULFATE [Concomitant]
     Indication: CHEMOTHERAPY
     Dosage: 1100 mg, qd
     Route: 042
     Dates: start: 20120604, end: 20120604
  14. DACTINOMYCIN [Concomitant]
     Indication: CHEMOTHERAPY
     Dosage: 1100 mg, qd
     Route: 042
     Dates: start: 20120604, end: 20120604

REACTIONS (1)
  - Haematuria [Recovered/Resolved]
